FAERS Safety Report 16974265 (Version 1)
Quarter: 2019Q4

REPORT INFORMATION
  Report Type: Spontaneous
  Country: JP (occurrence: JP)
  Receive Date: 20191030
  Receipt Date: 20191030
  Transmission Date: 20200122
  Serious: Yes (Other)
  Sender: FDA-Public Use
  Company Number: NVSC2019JP018024

PATIENT
  Age: 56 Year
  Sex: Male
  Weight: 89.5 kg

DRUGS (3)
  1. METHYLPREDNISOLONE. [Concomitant]
     Active Substance: METHYLPREDNISOLONE
     Dosage: 500 MG, QD (FOR 3 DAYS)
     Route: 065
  2. METHYLPREDNISOLONE. [Concomitant]
     Active Substance: METHYLPREDNISOLONE
     Indication: STEROID THERAPY
     Dosage: 1000 MG, QD (FOR 3 DAYS)
     Route: 065
  3. PREDNISOLONE. [Suspect]
     Active Substance: PREDNISOLONE
     Indication: ACQUIRED HAEMOPHILIA
     Dosage: 1 MG/KG, QD
     Route: 065

REACTIONS (3)
  - Renal impairment [Recovering/Resolving]
  - Product use in unapproved indication [Unknown]
  - Renal haemorrhage [Recovering/Resolving]
